FAERS Safety Report 6963770-4 (Version None)
Quarter: 2010Q3

REPORT INFORMATION
  Report Type: 
  Country: None (occurrence: None)
  Receive Date: 20100902
  Receipt Date: 20100825
  Transmission Date: 20110219
  Serious: Yes (Hospitalization)
  Sender: FDA-Public Use
  Company Number: US-ROCHE-724356

PATIENT
  Sex: Female
  Weight: 157 kg

DRUGS (6)
  1. TRASTUZUMAB [Suspect]
     Route: 065
  2. BEVACIZUMAB [Suspect]
     Dosage: ROUTE: IV BOLUS, LAST DOSE PRIOR SAE: 16 AUGUST 2010
     Route: 042
     Dates: start: 20090622
  3. VINORELBINE [Suspect]
     Dosage: ROUTE: IV PUSH, LAST DOSE PRIOR SAE: 16 AUGUST 2010
     Route: 042
     Dates: start: 20090622
  4. IBUPROFEN [Concomitant]
     Indication: PAIN
     Dosage: FREQUENCY: Q6II PRN
     Route: 048
  5. METOPROLOL TARTRATE [Concomitant]
     Dosage: FREQUENCY: Q12H
     Route: 048
  6. VALIUM [Concomitant]
     Dosage: FREQUENCY: QID PRN
     Route: 048

REACTIONS (3)
  - ABSCESS [None]
  - APPENDICITIS PERFORATED [None]
  - FEBRILE NEUTROPENIA [None]
